FAERS Safety Report 6719509-0 (Version None)
Quarter: 2010Q2

REPORT INFORMATION
  Report Type: 
  Country: None (occurrence: None)
  Receive Date: 20100511
  Receipt Date: 20100503
  Transmission Date: 20101027
  Serious: Yes (Death)
  Sender: FDA-Public Use
  Company Number: UY-ROCHE-701202

PATIENT
  Age: 39 Year
  Sex: Female

DRUGS (4)
  1. MYCOPHENOLATE MOFETIL [Suspect]
     Indication: LUPUS NEPHRITIS
     Route: 065
  2. HYDROXYCHLOROQUINE SULFATE [Concomitant]
  3. PREDNISONE TAB [Concomitant]
  4. AZATHIOPRINE [Concomitant]

REACTIONS (3)
  - MULTI-ORGAN FAILURE [None]
  - PANCREATITIS ACUTE [None]
  - SHOCK [None]
